FAERS Safety Report 17104715 (Version 1)
Quarter: 2019Q4

REPORT INFORMATION
  Report Type: Spontaneous
  Country: US (occurrence: US)
  Receive Date: 20191203
  Receipt Date: 20191203
  Transmission Date: 20200122
  Serious: Yes (Other)
  Sender: FDA-Public Use
  Company Number: US-UCBSA-2018001705

PATIENT
  Sex: Male
  Weight: 70 kg

DRUGS (12)
  1. KEPPRA XR [Interacting]
     Active Substance: LEVETIRACETAM
     Dosage: 750 MG IN THE MORNING AND KEPPRA XR 1000 MG AT NIGHT
     Route: 048
  2. KEPPRA [Suspect]
     Active Substance: LEVETIRACETAM
     Dosage: 1000 MG TWICE DAILY WITH EXTRA DOSE OF 500 MG
     Route: 048
     Dates: start: 2006, end: 2006
  3. BICALUTAMIDE. [Concomitant]
     Active Substance: BICALUTAMIDE
     Indication: PROSTATE CANCER
     Dosage: 50 MG DAILY
  4. KEPPRA [Suspect]
     Active Substance: LEVETIRACETAM
     Dosage: 1000 MG, 2X/DAY (BID)
     Route: 048
     Dates: end: 201710
  5. CASODEX [Concomitant]
     Active Substance: BICALUTAMIDE
     Indication: PRODUCT USED FOR UNKNOWN INDICATION
     Dosage: 5 MG, ONCE DAILY (QD)
  6. COUMADIN [Concomitant]
     Active Substance: WARFARIN SODIUM
     Indication: PRODUCT USED FOR UNKNOWN INDICATION
     Dosage: 4 MG, ONCE DAILY (QD)
  7. KEPPRA [Suspect]
     Active Substance: LEVETIRACETAM
     Indication: SEIZURE
     Dosage: 1000 MG, 2X/DAY (BID)
     Route: 048
     Dates: start: 2004
  8. DILANTIN [Interacting]
     Active Substance: PHENYTOIN
     Indication: PRODUCT USED FOR UNKNOWN INDICATION
     Dosage: 130 MG, 2X/DAY (BID)
  9. WARFARIN [Concomitant]
     Active Substance: WARFARIN
     Indication: ANTICOAGULANT THERAPY
     Dosage: 4.5 MG DAILY
     Route: 048
  10. KEPPRA XR [Interacting]
     Active Substance: LEVETIRACETAM
     Indication: SEIZURE
     Dosage: 1500 MG, 2X/DAY (BID)
     Route: 048
     Dates: start: 201710
  11. KEPPRA XR [Interacting]
     Active Substance: LEVETIRACETAM
     Dosage: 1500 IN THE MORNING AND 1000 MG AT NIGHT
     Route: 048
  12. KEPPRA XR [Interacting]
     Active Substance: LEVETIRACETAM
     Dosage: 750 MG, 2X/DAY (BID)
     Route: 048

REACTIONS (6)
  - Seizure [Recovering/Resolving]
  - Extra dose administered [Unknown]
  - Balance disorder [Recovering/Resolving]
  - Off label use [Unknown]
  - Constipation [Not Recovered/Not Resolved]
  - Drug interaction [Not Recovered/Not Resolved]

NARRATIVE: CASE EVENT DATE: 2006
